FAERS Safety Report 5356717-8 (Version None)
Quarter: 2007Q2

REPORT INFORMATION
  Report Type: 
  Country: None (occurrence: None)
  Receive Date: 20070614
  Receipt Date: 20070531
  Transmission Date: 20071010
  Serious: Yes (Death, Life-Threatening, Hospitalization)
  Sender: FDA-Public Use
  Company Number: FR-BAYER-200710351BFR

PATIENT
  Age: 74 Year
  Sex: Male

DRUGS (5)
  1. CIFLOX [Suspect]
     Indication: RESPIRATORY TRACT INFECTION
     Dosage: TOTAL DAILY DOSE: 1 G  UNIT DOSE: 500 MG
     Route: 048
     Dates: start: 20070323, end: 20070329
  2. PREVISCAN [Interacting]
     Indication: UNEVALUABLE EVENT
     Dosage: TOTAL DAILY DOSE: 10 MG  UNIT DOSE: 20 MG
     Route: 048
     Dates: end: 20070329
  3. LASIX [Interacting]
     Indication: HYPERTENSION
     Dosage: TOTAL DAILY DOSE: 80 MG  UNIT DOSE: 40 MG
     Route: 048
     Dates: end: 20070329
  4. ROCEPHIN [Interacting]
     Indication: RESPIRATORY TRACT INFECTION
     Dosage: TOTAL DAILY DOSE: 2 G  UNIT DOSE: 2 G
     Route: 042
     Dates: start: 20070323, end: 20070329
  5. SOLU-MEDROL [Interacting]
     Indication: UNEVALUABLE EVENT
     Dosage: TOTAL DAILY DOSE: 120 MG  UNIT DOSE: 40 MG
     Route: 042
     Dates: start: 20070323, end: 20070329

REACTIONS (3)
  - CEREBRAL HAEMORRHAGE [None]
  - INTERNATIONAL NORMALISED RATIO INCREASED [None]
  - RESPIRATORY FAILURE [None]
